FAERS Safety Report 6928745-X (Version None)
Quarter: 2010Q3

REPORT INFORMATION
  Report Type: 
  Country: None (occurrence: None)
  Receive Date: 20100809
  Receipt Date: 20100312
  Transmission Date: 20110219
  Serious: No
  Sender: FDA-Public Use
  Company Number: US-001575

PATIENT
  Sex: Male

DRUGS (11)
  1. DEGARELIX 240 MG [Suspect]
     Indication: PROSTATE CANCER
     Dosage: 240 MG 1X SUBCUTANEOUS
     Route: 058
     Dates: start: 20100217, end: 20100217
  2. REGULAR INSULIN [Concomitant]
  3. ADVIL LIQUI-GELS [Concomitant]
  4. LANTUS [Concomitant]
  5. ZESTRIL [Concomitant]
  6. METFORMIN [Concomitant]
  7. MULTI-VITAMIN [Concomitant]
  8. NOVOLOG [Concomitant]
  9. OMEPRAZOLE [Concomitant]
  10. SIMVASTATIN [Concomitant]
  11. SYNTHROID [Concomitant]

REACTIONS (1)
  - INJECTION SITE MASS [None]
